FAERS Safety Report 24652115 (Version 1)
Quarter: 2024Q4

REPORT INFORMATION
  Report Type: Spontaneous
  Country: NO (occurrence: NO)
  Receive Date: 20241122
  Receipt Date: 20241122
  Transmission Date: 20250115
  Serious: Yes (Hospitalization)
  Sender: SUNOVION
  Company Number: NO-CNX THERAPEUTICS-2024CNX000985

PATIENT

DRUGS (1)
  1. LATUDA [Suspect]
     Active Substance: LURASIDONE HYDROCHLORIDE
     Indication: Psychotic disorder
     Dosage: 74 MG DAILY
     Route: 048
     Dates: start: 2018, end: 202410

REACTIONS (6)
  - Off label use [Recovered/Resolved with Sequelae]
  - Poor dental condition [Recovered/Resolved with Sequelae]
  - Tooth abscess [Unknown]
  - Loose tooth [Unknown]
  - Gingival pain [Unknown]
  - Gingival swelling [Unknown]

NARRATIVE: CASE EVENT DATE: 20180101
